FAERS Safety Report 7221122-6 (Version None)
Quarter: 2011Q1

REPORT INFORMATION
  Report Type: 
  Country: None (occurrence: None)
  Receive Date: 20110112
  Receipt Date: 20110106
  Transmission Date: 20110831
  Serious: Yes (Hospitalization, Other)
  Sender: FDA-Public Use
  Company Number: US-PFIZER INC-2009271675

PATIENT
  Sex: Male

DRUGS (1)
  1. CHANTIX [Suspect]
     Indication: SMOKING CESSATION THERAPY
     Dosage: UNK
     Dates: start: 20070101, end: 20070101

REACTIONS (22)
  - CONVULSION [None]
  - NERVOUS SYSTEM DISORDER [None]
  - AGGRESSION [None]
  - ANXIETY [None]
  - NIGHTMARE [None]
  - SUICIDE ATTEMPT [None]
  - MENTAL DISORDER [None]
  - AMNESIA [None]
  - NAUSEA [None]
  - HALLUCINATION [None]
  - DEPRESSION [None]
  - ABNORMAL BEHAVIOUR [None]
  - PARANOIA [None]
  - DECREASED APPETITE [None]
  - DYSPEPSIA [None]
  - BACK DISORDER [None]
  - SUICIDAL IDEATION [None]
  - ROAD TRAFFIC ACCIDENT [None]
  - HOMICIDAL IDEATION [None]
  - LOSS OF CONSCIOUSNESS [None]
  - INSOMNIA [None]
  - CHEST PAIN [None]
